FAERS Safety Report 9048351 (Version 1)
Quarter: 2013Q1

REPORT INFORMATION
  Report Type: Spontaneous
  Country: US (occurrence: None)
  Receive Date: 20130130
  Receipt Date: 20130130
  Transmission Date: 20140127
  Serious: No
  Sender: FDA-Public Use
  Company Number: None

PATIENT
  Age: 63 Year
  Sex: Male
  Weight: 61.5 kg

DRUGS (1)
  1. AMIODARONE [Suspect]
     Indication: ARRHYTHMIA
     Route: 048
     Dates: start: 20100527, end: 20120111

REACTIONS (6)
  - Lung infiltration [None]
  - Pulmonary toxicity [None]
  - Fungal infection [None]
  - Neoplasm malignant [None]
  - Pulmonary fibrosis [None]
  - Toxicity to various agents [None]
